FAERS Safety Report 7156171-X (Version None)
Quarter: 2010Q4

REPORT INFORMATION
  Report Type: 
  Country: None (occurrence: None)
  Receive Date: 20101123
  Receipt Date: 20101006
  Transmission Date: 20110411
  Serious: Yes (Hospitalization)
  Sender: FDA-Public Use
  Company Number: 019971

PATIENT
  Sex: Female
  Weight: 91.2 kg

DRUGS (7)
  1. CIMZIA [Suspect]
  2. PENTASA [Concomitant]
  3. LANTUS [Concomitant]
  4. GLYBURIDE [Concomitant]
  5. METFORMIN [Concomitant]
  6. SIMVASTATIN [Concomitant]
  7. NEXIUM [Concomitant]

REACTIONS (3)
  - ABDOMINAL PAIN [None]
  - ANGINA PECTORIS [None]
  - BACK PAIN [None]
